FAERS Safety Report 5836336-7 (Version None)
Quarter: 2008Q3

REPORT INFORMATION
  Report Type: 
  Country: None (occurrence: None)
  Receive Date: 20080807
  Receipt Date: 20080710
  Transmission Date: 20090109
  Serious: No
  Sender: FDA-Public Use
  Company Number: US-JNJFOC-20080703178

PATIENT
  Age: 40 Year
  Sex: Female

DRUGS (4)
  1. INVEGA [Suspect]
     Route: 048
  2. INVEGA [Suspect]
     Indication: DRUG USE FOR UNKNOWN INDICATION
     Route: 048
  3. EFFEXOR [Suspect]
     Route: 048
  4. EFFEXOR [Suspect]
     Indication: DRUG USE FOR UNKNOWN INDICATION
     Route: 048

REACTIONS (1)
  - OEDEMA PERIPHERAL [None]
